FAERS Safety Report 21756353 (Version 1)
Quarter: 2022Q4

REPORT INFORMATION
  Report Type: Spontaneous
  Country: JP (occurrence: JP)
  Receive Date: 20221220
  Receipt Date: 20221220
  Transmission Date: 20230112
  Serious: Yes (Hospitalization)
  Sender: FDA-Public Use
  Company Number: JP-SA-2021SA428410

PATIENT
  Age: 11 Month
  Sex: Female
  Weight: 9.48 kg

DRUGS (19)
  1. SABRIL [Suspect]
     Active Substance: VIGABATRIN
     Indication: Infantile spasms
     Dosage: DAILY DOSE 500 MG, BID
     Route: 048
     Dates: start: 20190916, end: 20190924
  2. SABRIL [Suspect]
     Active Substance: VIGABATRIN
     Dosage: 250 MG, QD
     Route: 048
     Dates: start: 20190909, end: 20190915
  3. SABRIL [Suspect]
     Active Substance: VIGABATRIN
     Dosage: DAILY DOSE 750 MG, TID
     Route: 048
     Dates: start: 20190925, end: 20191001
  4. SABRIL [Suspect]
     Active Substance: VIGABATRIN
     Dosage: DAILY DOSE 900 MG, TID
     Route: 048
     Dates: start: 20191002, end: 20201012
  5. SABRIL [Suspect]
     Active Substance: VIGABATRIN
     Dosage: DAILY DOSE 900 MG, BID
     Route: 048
     Dates: start: 20201013, end: 20211004
  6. SABRIL [Suspect]
     Active Substance: VIGABATRIN
     Dosage: 350 MG, BID
     Route: 048
     Dates: start: 20211005, end: 20211107
  7. SABRIL [Suspect]
     Active Substance: VIGABATRIN
     Dosage: DAILY DOSE 500 MG, BID
     Route: 048
     Dates: start: 20211108, end: 20211118
  8. SABRIL [Suspect]
     Active Substance: VIGABATRIN
     Dosage: 250 MG, QD
     Route: 048
     Dates: start: 20211119, end: 20211202
  9. CLOBAZAM [Concomitant]
     Active Substance: CLOBAZAM
     Indication: Infantile spasms
     Dosage: DAILY DOSE 5 MG
     Route: 048
     Dates: start: 202012
  10. VALPROATE SODIUM [Concomitant]
     Active Substance: VALPROATE SODIUM
     Indication: Infantile spasms
     Dosage: DAILY DOSE 200 MG
     Route: 048
     Dates: end: 20191030
  11. VALPROATE SODIUM [Concomitant]
     Active Substance: VALPROATE SODIUM
     Dosage: UNK
     Route: 048
     Dates: start: 20211209
  12. CLONAZEPAM [Concomitant]
     Active Substance: CLONAZEPAM
     Indication: Infantile spasms
     Dosage: DAILY DOSE 4 MG
     Route: 048
  13. CLONAZEPAM [Concomitant]
     Active Substance: CLONAZEPAM
     Dosage: DAILY DOSE 5 MG
     Route: 048
     Dates: end: 202104
  14. LEVETIRACETAM [Concomitant]
     Active Substance: LEVETIRACETAM
     Indication: Infantile spasms
     Dosage: DAILY DOSE 280 MG
     Route: 048
     Dates: end: 202104
  15. LAMOTRIGINE [Concomitant]
     Active Substance: LAMOTRIGINE
     Indication: Infantile spasms
     Dosage: DAILY DOSE 12 MG
     Route: 048
     Dates: start: 20191212
  16. LAMOTRIGINE [Concomitant]
     Active Substance: LAMOTRIGINE
     Dosage: DAILY DOSE 20 MG
     Route: 048
  17. LAMOTRIGINE [Concomitant]
     Active Substance: LAMOTRIGINE
     Dosage: DAILY DOSE 41 MG
     Route: 048
  18. PERAMPANEL [Concomitant]
     Active Substance: PERAMPANEL
     Indication: Infantile spasms
     Dosage: DAILY DOSE 7 MG
     Route: 048
     Dates: start: 202104
  19. PERAMPANEL [Concomitant]
     Active Substance: PERAMPANEL
     Dosage: DAILY DOSE 5 MG
     Route: 048

REACTIONS (7)
  - Bronchitis [Recovering/Resolving]
  - Upper respiratory tract inflammation [Recovered/Resolved]
  - Influenza [Recovered/Resolved]
  - Respiratory syncytial virus infection [Recovering/Resolving]
  - C-reactive protein increased [Recovering/Resolving]
  - Pyrexia [Recovered/Resolved]
  - Hypophagia [Recovered/Resolved with Sequelae]

NARRATIVE: CASE EVENT DATE: 20190924
